FAERS Safety Report 7608058-3 (Version None)
Quarter: 2011Q3

REPORT INFORMATION
  Report Type: 
  Country: None (occurrence: None)
  Receive Date: 20110706
  Receipt Date: 20110628
  Transmission Date: 20111222
  Serious: Yes (Life-Threatening, Hospitalization)
  Sender: FDA-Public Use
  Company Number: 1000017474

PATIENT
  Age: 30 Year
  Sex: Female

DRUGS (3)
  1. DILTIAZEM [Suspect]
  2. AMIODARONE HCL [Suspect]
  3. METOPROLOL TARTRATE [Suspect]

REACTIONS (6)
  - CONFUSIONAL STATE [None]
  - MULTIPLE DRUG OVERDOSE [None]
  - CARDIOGENIC SHOCK [None]
  - RENAL FAILURE [None]
  - ANURIA [None]
  - BLOOD GLUCOSE INCREASED [None]
